FAERS Safety Report 8417389-9 (Version None)
Quarter: 2012Q2

REPORT INFORMATION
  Report Type: 
  Country: None (occurrence: None)
  Receive Date: 20120606
  Receipt Date: 20120531
  Transmission Date: 20120825
  Serious: Yes (Hospitalization)
  Sender: FDA-Public Use
  Company Number: DE-B.I. PHARMACEUTICALS,INC./RIDGEFIELD-2012-DE-01389DE

PATIENT

DRUGS (1)
  1. DABIGATRAN [Suspect]
     Indication: ATRIAL FIBRILLATION

REACTIONS (2)
  - HAEMOGLOBIN DECREASED [None]
  - CARDIAC FAILURE [None]
